FAERS Safety Report 9506621 (Version 1)
Quarter: 2013Q3

REPORT INFORMATION
  Report Type: Spontaneous
  Country: IT (occurrence: None)
  Receive Date: 20130904
  Receipt Date: 20130904
  Transmission Date: 20140515
  Serious: Yes (Hospitalization)
  Sender: FDA-Public Use
  Company Number: GER/ITL/13/0034344

PATIENT
  Age: 69 Year
  Sex: Female

DRUGS (1)
  1. CLOPIDOGREL [Suspect]
     Indication: ISCHAEMIC CARDIOMYOPATHY
     Route: 048

REACTIONS (3)
  - Dysuria [None]
  - Presyncope [None]
  - Abdominal pain [None]
